FAERS Safety Report 12374501 (Version 1)
Quarter: 2016Q2

REPORT INFORMATION
  Report Type: Spontaneous
  Country: US (occurrence: US)
  Receive Date: 20160517
  Receipt Date: 20160517
  Transmission Date: 20160815
  Serious: Yes (Hospitalization)
  Sender: FDA-Public Use
  Company Number: US-PROCTER_AND_GAMBLE-GS16057971

PATIENT
  Age: 20 Year
  Sex: Male

DRUGS (1)
  1. OLD SPICE HIGH ENDURANCE PURE SPORT [Suspect]
     Active Substance: ALUMINUM CHLOROHYDRATE\ALUMINUM ZIRCONIUM TRICHLOROHYDREX GLY
     Dosage: 2-3 SWIPES UNDER ARMS ONCE A DAY
     Route: 061
     Dates: end: 201704

REACTIONS (10)
  - Rash macular [Recovered/Resolved]
  - Pyrexia [Recovered/Resolved]
  - Chills [Recovered/Resolved]
  - Axillary pain [Recovered/Resolved]
  - Infection [Recovering/Resolving]
  - Rash erythematous [Recovered/Resolved]
  - Skin warm [Recovered/Resolved]
  - Bloody discharge [Recovered/Resolved]
  - Abscess [Recovering/Resolving]
  - Purulent discharge [Recovered/Resolved]

NARRATIVE: CASE EVENT DATE: 20160413
